FAERS Safety Report 7813329-1 (Version None)
Quarter: 2011Q4

REPORT INFORMATION
  Report Type: 
  Country: None (occurrence: None)
  Receive Date: 20111013
  Receipt Date: 20110929
  Transmission Date: 20120403
  Serious: Yes (Other)
  Sender: FDA-Public Use
  Company Number: CZ-ROCHE-1001077

PATIENT
  Sex: Male

DRUGS (3)
  1. AVASTIN [Suspect]
     Dates: start: 20090717, end: 20100615
  2. AVASTIN [Suspect]
     Dates: start: 20110212, end: 20110703
  3. AVASTIN [Suspect]
     Indication: COLORECTAL CANCER
     Dates: start: 20090109, end: 20090717

REACTIONS (2)
  - EMBOLISM [None]
  - SARCOIDOSIS [None]
